FAERS Safety Report 9482009 (Version 2)
Quarter: 2013Q3

REPORT INFORMATION
  Report Type: Spontaneous
  Country: US (occurrence: US)
  Receive Date: 20130828
  Receipt Date: 20130930
  Transmission Date: 20140515
  Serious: Yes (Hospitalization, Other)
  Sender: FDA-Public Use
  Company Number: US-MERCK-1308USA011945

PATIENT
  Age: 48 Year
  Sex: Female

DRUGS (8)
  1. SAPHRIS [Suspect]
     Indication: DISSOCIATIVE IDENTITY DISORDER
     Dosage: 5 MG, BID, RAPID DISSOLVE 5
     Route: 048
     Dates: start: 20130417
  2. SAPHRIS [Suspect]
     Indication: PARANOIA
  3. SAPHRIS [Suspect]
     Indication: PSYCHOTIC DISORDER
  4. SAPHRIS [Suspect]
     Indication: DELUSION
  5. POTASSIUM CHLORIDE [Concomitant]
     Dosage: UNK
  6. OMEPRAZOLE [Concomitant]
     Dosage: UNK
  7. CYANOCOBALAMIN [Concomitant]
     Dosage: UNK
  8. CHOLECALCIFEROL [Concomitant]
     Dosage: UNK

REACTIONS (7)
  - Aphasia [Unknown]
  - Hemiparesis [Unknown]
  - Confusional state [Unknown]
  - Agitation [Unknown]
  - Speech disorder [Unknown]
  - Flat affect [Unknown]
  - Gait disturbance [Unknown]
